FAERS Safety Report 23912274 (Version 5)
Quarter: 2024Q3

REPORT INFORMATION
  Report Type: Report from Study
  Country: CA (occurrence: CA)
  Receive Date: 20240528
  Receipt Date: 20240805
  Transmission Date: 20241017
  Serious: Yes (Hospitalization, Other)
  Sender: DAIICHI
  Company Number: CA-AstraZeneca-2024A062606

PATIENT
  Sex: Female

DRUGS (1)
  1. ENHERTU [Suspect]
     Active Substance: FAM-TRASTUZUMAB DERUXTECAN-NXKI
     Indication: HER2 positive breast cancer
     Dosage: 486 MG, ONCE EVERY 3 WK
     Route: 042
     Dates: start: 20230524

REACTIONS (9)
  - Confusional state [Unknown]
  - Non-alcoholic steatohepatitis [Unknown]
  - Hepatic cirrhosis [Unknown]
  - Blood glucose abnormal [Unknown]
  - Fall [Not Recovered/Not Resolved]
  - Anaemia [Unknown]
  - Malaise [Unknown]
  - General physical health deterioration [Unknown]
  - Inappropriate schedule of product administration [Unknown]

NARRATIVE: CASE EVENT DATE: 20240101
